FAERS Safety Report 21029769 (Version 1)
Quarter: 2022Q2

REPORT INFORMATION
  Report Type: Spontaneous
  Country: CN (occurrence: None)
  Receive Date: 20220630
  Receipt Date: 20220630
  Transmission Date: 20220721
  Serious: Yes (Other)
  Sender: FDA-Public Use
  Company Number: CN-ROCHE-3122483

PATIENT
  Sex: Female

DRUGS (11)
  1. ALECENSA [Suspect]
     Active Substance: ALECTINIB HYDROCHLORIDE
     Indication: Adenocarcinoma
     Route: 065
     Dates: start: 20190116
  2. LORLATINIB [Suspect]
     Active Substance: LORLATINIB
     Indication: Adenocarcinoma
     Route: 065
     Dates: start: 202007
  3. CATEQUENTINIB [Suspect]
     Active Substance: CATEQUENTINIB
     Indication: Adenocarcinoma
     Dosage: 10MG FOR 2 WEEKS, 12MG FOR 10 DAYS
     Route: 065
     Dates: start: 202105
  4. BRIGATINIB [Concomitant]
     Active Substance: BRIGATINIB
     Indication: Adenocarcinoma
     Dates: start: 201908
  5. PEMETREXED [Concomitant]
     Active Substance: PEMETREXED
     Indication: Adenocarcinoma
     Dates: start: 201909
  6. CARBOPLATIN [Concomitant]
     Active Substance: CARBOPLATIN
     Indication: Adenocarcinoma
     Dates: start: 201909
  7. PACLITAXEL [Concomitant]
     Active Substance: PACLITAXEL
     Indication: Adenocarcinoma
     Dosage: FOR 2 WEEKS
     Dates: start: 2020
  8. GEMCITABINE [Concomitant]
     Active Substance: GEMCITABINE
     Indication: Adenocarcinoma
     Dates: start: 202010, end: 202104
  9. ENSARTINIB [Concomitant]
     Active Substance: ENSARTINIB
     Indication: Adenocarcinoma
     Dates: start: 20210629
  10. ENDOSTATIN [Concomitant]
     Active Substance: ENDOSTATIN
     Indication: Adenocarcinoma
     Dates: start: 20210701
  11. ENDOSTATIN [Concomitant]
     Active Substance: ENDOSTATIN
     Dates: start: 20220112

REACTIONS (2)
  - Brain injury [Recovering/Resolving]
  - Drug ineffective [Unknown]

NARRATIVE: CASE EVENT DATE: 20200101
